FAERS Safety Report 5346559-1 (Version None)
Quarter: 2007Q2

REPORT INFORMATION
  Report Type: 
  Country: None (occurrence: None)
  Receive Date: 20070605
  Receipt Date: 20070522
  Transmission Date: 20071010
  Serious: Yes (Death, Life-Threatening)
  Sender: FDA-Public Use
  Company Number: JP-MERCK-0705USA05131

PATIENT
  Sex: Male

DRUGS (2)
  1. HYZAAR [Suspect]
     Route: 048
  2. WARFARIN POTASSIUM [Concomitant]
     Route: 048

REACTIONS (1)
  - THROMBOSIS [None]
